FAERS Safety Report 26110082 (Version 1)
Quarter: 2025Q4

REPORT INFORMATION
  Report Type: Spontaneous
  Country: TW (occurrence: TW)
  Receive Date: 20251201
  Receipt Date: 20251201
  Transmission Date: 20260117
  Serious: Yes (Hospitalization)
  Sender: KOWA PHARM
  Company Number: TW-KOWA-25JP003061AA

PATIENT
  Age: 75 Year
  Sex: Female
  Weight: 59 kg

DRUGS (2)
  1. LIVALO [Suspect]
     Active Substance: PITAVASTATIN CALCIUM
     Indication: Hyperlipidaemia
     Dosage: UNK, UNK
     Route: 048
     Dates: start: 20251023, end: 20251025
  2. MONASCUS PURPUREUS [Concomitant]
     Active Substance: RED YEAST
     Indication: Hyperlipidaemia
     Dosage: 1200 MG, BID
     Route: 048
     Dates: start: 20230311

REACTIONS (7)
  - Pyrexia [Recovered/Resolved]
  - Hyponatraemia [Recovered/Resolved]
  - Hypokalaemia [Recovered/Resolved]
  - C-reactive protein increased [Recovered/Resolved]
  - Blood immunoglobulin E increased [Recovered/Resolved]
  - Rash erythematous [Recovered/Resolved]
  - Hepatic enzyme increased [Recovered/Resolved]

NARRATIVE: CASE EVENT DATE: 20251025
